FAERS Safety Report 5316738-8 (Version None)
Quarter: 2007Q2

REPORT INFORMATION
  Report Type: 
  Country: None (occurrence: None)
  Receive Date: 20070501
  Receipt Date: 20070501
  Transmission Date: 20071010
  Serious: Yes (Death)
  Sender: FDA-Public Use
  Company Number: None

PATIENT
  Age: 54 Year
  Sex: Male
  Weight: 65 kg

DRUGS (10)
  1. STAVUDINE [Suspect]
     Indication: HIV INFECTION
     Dosage: 30 MG TWICE DAILY PO
     Route: 048
     Dates: start: 20060717, end: 20070412
  2. EFAVIRENZ [Suspect]
     Indication: HIV INFECTION
     Dosage: 600 MG AT NIGHT PO
     Route: 048
     Dates: start: 20060717, end: 20070412
  3. LAMIVUDINE [Suspect]
     Indication: HIV INFECTION
     Dosage: 150 MG TWICE DAILY PO
     Route: 048
     Dates: start: 20060717, end: 20070412
  4. RIFAPENTINE [Concomitant]
  5. ISONIAZZID [Concomitant]
  6. ETHAMBUTOL HYDROCHLORIDE [Concomitant]
  7. VITAMIN B6 [Concomitant]
  8. PROMETHAZINE [Concomitant]
  9. HYDROCHLOROTHIOZIDE [Concomitant]
  10. AMITRIPTILINE [Concomitant]

REACTIONS (3)
  - ARTHRALGIA [None]
  - ARTHROPOD BITE [None]
  - JOINT SWELLING [None]
